FAERS Safety Report 25605628 (Version 2)
Quarter: 2025Q3

REPORT INFORMATION
  Report Type: Spontaneous
  Country: US (occurrence: US)
  Receive Date: 20250725
  Receipt Date: 20250818
  Transmission Date: 20251020
  Serious: No
  Sender: SANOFI AVENTIS
  Company Number: US-SA-2025SA213432

PATIENT
  Age: 61 Year
  Sex: Female
  Weight: 61.36 kg

DRUGS (24)
  1. DUPIXENT [Suspect]
     Active Substance: DUPILUMAB
     Indication: Idiopathic urticaria
     Route: 058
     Dates: start: 2025, end: 2025
  2. TOPIRAMATE [Concomitant]
     Active Substance: TOPIRAMATE
  3. NASONEX [Concomitant]
     Active Substance: MOMETASONE FUROATE
  4. GABAPENTIN [Concomitant]
     Active Substance: GABAPENTIN
  5. MONTELUKAST SODIUM [Concomitant]
     Active Substance: MONTELUKAST SODIUM
  6. TRAZODONE HCL [Concomitant]
     Active Substance: TRAZODONE HYDROCHLORIDE
  7. DICLOFENAC SODIUM [Concomitant]
     Active Substance: DICLOFENAC SODIUM
  8. AMITIZA [Concomitant]
     Active Substance: LUBIPROSTONE
  9. UBRELVY [Concomitant]
     Active Substance: UBROGEPANT
  10. PANTOPRAZOLE SODIUM [Concomitant]
     Active Substance: PANTOPRAZOLE SODIUM
  11. MIRALAX [Concomitant]
     Active Substance: POLYETHYLENE GLYCOL 3350
  12. FAMOTIDINE [Concomitant]
     Active Substance: FAMOTIDINE
  13. VITAMIN D3 [Concomitant]
     Active Substance: CHOLECALCIFEROL
  14. HYDROXYZINE HYDROCHLORIDE [Concomitant]
     Active Substance: HYDROXYZINE HYDROCHLORIDE
  15. MELATONIN [Concomitant]
     Active Substance: MELATONIN
  16. TRIAMCINOLONE [Concomitant]
     Active Substance: TRIAMCINOLONE
  17. LEVOCETIRIZINE DIHYDROCHLORIDE [Concomitant]
     Active Substance: LEVOCETIRIZINE DIHYDROCHLORIDE
  18. CLONIDINE [Concomitant]
     Active Substance: CLONIDINE
  19. BREO ELLIPTA [Concomitant]
     Active Substance: FLUTICASONE FUROATE\VILANTEROL TRIFENATATE
  20. EPIPHEN [Concomitant]
  21. PROAIR HFA [Concomitant]
     Active Substance: ALBUTEROL SULFATE
  22. NEURONTIN [Concomitant]
     Active Substance: GABAPENTIN
  23. ZOVIRAX [Concomitant]
     Active Substance: ACYCLOVIR
  24. NASONEX [Concomitant]
     Active Substance: MOMETASONE FUROATE
     Route: 045

REACTIONS (8)
  - Skin discolouration [Unknown]
  - Lymphadenopathy [Unknown]
  - Swelling [Unknown]
  - Rash pruritic [Unknown]
  - Decubitus ulcer [Unknown]
  - Urticaria [Unknown]
  - Scratch [Unknown]
  - Product use in unapproved indication [Unknown]

NARRATIVE: CASE EVENT DATE: 20250101
